FAERS Safety Report 11760138 (Version 1)
Quarter: 2015Q4

REPORT INFORMATION
  Report Type: Spontaneous
  Country: US (occurrence: US)
  Receive Date: 20151120
  Receipt Date: 20151120
  Transmission Date: 20160304
  Serious: No
  Sender: FDA-Public Use
  Company Number: US-ELI_LILLY_AND_COMPANY-US201211001596

PATIENT

DRUGS (1)
  1. FORTEO [Suspect]
     Active Substance: TERIPARATIDE
     Indication: OSTEOPOROSIS
     Dosage: UNK20 UG, QD
     Route: 065
     Dates: start: 20120903, end: 201209

REACTIONS (3)
  - Mobility decreased [Unknown]
  - Blood pressure increased [Unknown]
  - Fatigue [Unknown]
